FAERS Safety Report 16405493 (Version 2)
Quarter: 2019Q2

REPORT INFORMATION
  Report Type: Spontaneous
  Country: US (occurrence: US)
  Receive Date: 20190607
  Receipt Date: 20190625
  Transmission Date: 20190711
  Serious: No
  Sender: FDA-Public Use
  Company Number: US-GLAXOSMITHKLINE-US2019102167

PATIENT
  Age: 57 Year
  Sex: Female

DRUGS (1)
  1. ABREVA [Suspect]
     Active Substance: DOCOSANOL
     Indication: HERPES VIRUS INFECTION
     Dosage: UNK
     Dates: start: 20190531, end: 20190602

REACTIONS (9)
  - Insomnia [Recovering/Resolving]
  - Product use issue [Unknown]
  - Lip haemorrhage [Recovering/Resolving]
  - Lip blister [Recovering/Resolving]
  - Oral discomfort [Unknown]
  - Product complaint [Unknown]
  - Lip pain [Recovering/Resolving]
  - Oral herpes [Recovering/Resolving]
  - Condition aggravated [Recovering/Resolving]

NARRATIVE: CASE EVENT DATE: 20190531
